FAERS Safety Report 10974807 (Version 1)
Quarter: 2015Q2

REPORT INFORMATION
  Report Type: Spontaneous
  Country: AU (occurrence: AU)
  Receive Date: 20150401
  Receipt Date: 20150401
  Transmission Date: 20150821
  Serious: Yes (Other)
  Sender: FDA-Public Use
  Company Number: PHHY2015AU035253

PATIENT
  Sex: Female

DRUGS (1)
  1. AFINITOR [Suspect]
     Active Substance: EVEROLIMUS
     Indication: RENAL CANCER STAGE IV
     Route: 065
     Dates: start: 20150218

REACTIONS (2)
  - Haematochezia [Recovering/Resolving]
  - Faeces discoloured [Recovering/Resolving]
